FAERS Safety Report 13553107 (Version 1)
Quarter: 2017Q2

REPORT INFORMATION
  Report Type: Spontaneous
  Country: US (occurrence: US)
  Receive Date: 20170516
  Receipt Date: 20170516
  Transmission Date: 20170830
  Serious: Yes (Disabling, Other)
  Sender: FDA-Public Use
  Company Number: None

PATIENT
  Age: 93 Year
  Sex: Female
  Weight: 60.75 kg

DRUGS (20)
  1. NUEDEXTA [Suspect]
     Active Substance: DEXTROMETHORPHAN HYDROBROMIDE\QUINIDINE SULFATE
     Indication: ANXIETY
     Dosage: PO 1-3XDAYDOUBLE DOSE?
     Route: 048
  2. QUETIAPINE. [Concomitant]
     Active Substance: QUETIAPINE
  3. FUROSEMIDE. [Concomitant]
     Active Substance: FUROSEMIDE
  4. ACIDOPHILUS [Concomitant]
     Active Substance: LACTOBACILLUS ACIDOPHILUS
  5. VITAMIN D3 [Concomitant]
     Active Substance: CHOLECALCIFEROL
  6. METOPROL TAR [Concomitant]
  7. ACETAMINOPHEN. [Concomitant]
     Active Substance: ACETAMINOPHEN
  8. VITAMIN B12 [Concomitant]
     Active Substance: CYANOCOBALAMIN
  9. ALPHA LIPOIC [Concomitant]
  10. CITRACAL CAL+D [Concomitant]
  11. GLUCO/CHON/MSM [Concomitant]
  12. COD LIVER CAP [Concomitant]
  13. LORAZEPAM. [Concomitant]
     Active Substance: LORAZEPAM
  14. COENZYME Q10 [Concomitant]
     Active Substance: UBIDECARENONE
  15. FERROUS SULF EC [Concomitant]
  16. FE LUTEIN [Concomitant]
  17. VITAMIN C [Concomitant]
     Active Substance: ASCORBIC ACID
  18. VITAMIN E [Concomitant]
     Active Substance: .ALPHA.-TOCOPHEROL
  19. CLOPIDOGREL [Concomitant]
     Active Substance: CLOPIDOGREL BISULFATE
  20. POLYETH GLYC POW [Concomitant]

REACTIONS (8)
  - Hallucination [None]
  - Hip fracture [None]
  - Dizziness [None]
  - Micturition urgency [None]
  - Screaming [None]
  - Insomnia [None]
  - Eating disorder [None]
  - Pain [None]

NARRATIVE: CASE EVENT DATE: 20170313
